FAERS Safety Report 22533861 (Version 2)
Quarter: 2023Q2

REPORT INFORMATION
  Report Type: Spontaneous
  Country: PK (occurrence: PK)
  Receive Date: 20230608
  Receipt Date: 20230611
  Transmission Date: 20230721
  Serious: Yes (Other)
  Sender: FDA-Public Use
  Company Number: PK-PFIZER INC-2020259819

PATIENT
  Age: 26 Year
  Sex: Female

DRUGS (10)
  1. ENBREL [Suspect]
     Active Substance: ETANERCEPT
     Indication: Rheumatoid arthritis
     Dosage: 50 MG, WEEKLY, ONCE
     Route: 058
     Dates: start: 20200703
  2. HYDROXYCHLOROQUINE SULFATE [Concomitant]
     Active Substance: HYDROXYCHLOROQUINE SULFATE
     Dosage: 200 MG, DAILY (0+0+1+0, AFTER MEAL)
  3. HYDROXYCHLOROQUINE SULFATE [Concomitant]
     Active Substance: HYDROXYCHLOROQUINE SULFATE
     Dosage: 1+0/1+1
  4. SULFASALAZINE [Concomitant]
     Active Substance: SULFASALAZINE
     Dosage: 500 MG 2+0+2+0
  5. SULFASALAZINE [Concomitant]
     Active Substance: SULFASALAZINE
     Dosage: 2 G, DAILY
  6. SULFASALAZINE [Concomitant]
     Active Substance: SULFASALAZINE
     Dosage: 2+0+2
  7. CYTOTREXATE [Concomitant]
     Dosage: 2.5 MG
  8. CYTOTREXATE [Concomitant]
     Dosage: 20 MG, WEEKLY
  9. FOLIC ACID [Concomitant]
     Active Substance: FOLIC ACID
     Dosage: 5 MG
  10. CELBEXX [Concomitant]
     Dosage: 200 MG

REACTIONS (7)
  - Gestational diabetes [Unknown]
  - Maternal exposure during pregnancy [Unknown]
  - Pain in extremity [Unknown]
  - Disease recurrence [Unknown]
  - Musculoskeletal stiffness [Unknown]
  - Hypertension [Unknown]
  - Arthralgia [Unknown]
